FAERS Safety Report 7965058 (Version 4)
Quarter: 2015Q2

REPORT INFORMATION
  Report Type: Spontaneous
  Country: US (occurrence: US)
  Receive Date: 20110527
  Receipt Date: 20150619
  Transmission Date: 20150821
  Serious: Yes (Other)
  Sender: FDA-Public Use
  Company Number: US-ASTRAZENECA-2011SE31103

PATIENT
  Age: 44 Year
  Sex: Female

DRUGS (29)
  1. SEROQUEL [Suspect]
     Active Substance: QUETIAPINE FUMARATE
     Indication: PSYCHOTIC DISORDER
     Dosage: 150 MG AT NIGHT, OTHER TIMES SHE HAS TO TAKEN AN EXTRA 50 MG
     Route: 048
     Dates: start: 201502
  2. SEROQUEL [Suspect]
     Active Substance: QUETIAPINE FUMARATE
     Indication: MOOD ALTERED
     Dosage: 450 MG DAILY, GENERIC
     Route: 048
     Dates: start: 201410, end: 201502
  3. MARINOL [Concomitant]
     Active Substance: DRONABINOL
     Indication: NAUSEA
     Route: 048
     Dates: start: 2013
  4. SEROQUEL [Suspect]
     Active Substance: QUETIAPINE FUMARATE
     Indication: PSYCHOTIC DISORDER
     Route: 048
  5. SEROQUEL [Suspect]
     Active Substance: QUETIAPINE FUMARATE
     Indication: MOOD ALTERED
     Route: 048
     Dates: start: 2004, end: 201410
  6. ANTI GAS OTC [Concomitant]
     Indication: ABDOMINAL DISTENSION
     Route: 048
  7. SEROQUEL [Suspect]
     Active Substance: QUETIAPINE FUMARATE
     Indication: BIPOLAR I DISORDER
     Dosage: 150 MG AT NIGHT, OTHER TIMES SHE HAS TO TAKEN AN EXTRA 50 MG
     Route: 048
     Dates: start: 201502
  8. ZOLPIDEM [Concomitant]
     Active Substance: ZOLPIDEM\ZOLPIDEM TARTRATE
     Indication: SLEEP DISORDER
     Route: 048
     Dates: start: 201501
  9. SALINE NASAL WASH [Concomitant]
     Indication: MULTIPLE ALLERGIES
     Route: 045
  10. SEROQUEL [Suspect]
     Active Substance: QUETIAPINE FUMARATE
     Indication: BIPOLAR I DISORDER
     Route: 048
     Dates: start: 2004, end: 201410
  11. SEROQUEL [Suspect]
     Active Substance: QUETIAPINE FUMARATE
     Indication: MOOD ALTERED
     Dosage: 150 MG AT NIGHT, OTHER TIMES SHE HAS TO TAKEN AN EXTRA 50 MG
     Route: 048
     Dates: start: 201502
  12. SEROQUEL [Suspect]
     Active Substance: QUETIAPINE FUMARATE
     Indication: PSYCHOTIC DISORDER
     Dosage: 450 MG DAILY, GENERIC
     Route: 048
     Dates: start: 201410, end: 201502
  13. TRAZODONE [Concomitant]
     Active Substance: TRAZODONE HYDROCHLORIDE
     Indication: SLEEP DISORDER
  14. DIAZEPAM. [Concomitant]
     Active Substance: DIAZEPAM
     Indication: ANXIETY
     Route: 048
     Dates: start: 2007
  15. SEROQUEL [Suspect]
     Active Substance: QUETIAPINE FUMARATE
     Indication: PARANOIA
     Route: 048
  16. SEROQUEL [Suspect]
     Active Substance: QUETIAPINE FUMARATE
     Indication: PSYCHOTIC DISORDER
     Route: 048
     Dates: start: 2004, end: 201410
  17. SEROQUEL [Suspect]
     Active Substance: QUETIAPINE FUMARATE
     Indication: PARANOIA
     Dosage: 450 MG DAILY, GENERIC
     Route: 048
     Dates: start: 201410, end: 201502
  18. VALIUM [Concomitant]
     Active Substance: DIAZEPAM
     Indication: PANIC DISORDER
  19. ADERALL [Concomitant]
     Indication: BIPOLAR DISORDER
     Route: 048
  20. SEROQUEL [Suspect]
     Active Substance: QUETIAPINE FUMARATE
     Indication: PARANOIA
     Route: 048
     Dates: start: 2004, end: 201410
  21. SEROQUEL [Suspect]
     Active Substance: QUETIAPINE FUMARATE
     Indication: BIPOLAR I DISORDER
     Dosage: 450 MG DAILY, GENERIC
     Route: 048
     Dates: start: 201410, end: 201502
  22. MARINOL [Concomitant]
     Active Substance: DRONABINOL
     Indication: ANXIETY
     Route: 048
     Dates: start: 2013
  23. VICODIN [Concomitant]
     Active Substance: ACETAMINOPHEN\HYDROCODONE BITARTRATE
     Indication: PAIN
     Route: 048
     Dates: start: 2012
  24. CELEBREX [Concomitant]
     Active Substance: CELECOXIB
     Indication: PAIN
     Route: 048
     Dates: start: 2010
  25. SEROQUEL [Suspect]
     Active Substance: QUETIAPINE FUMARATE
     Indication: BIPOLAR I DISORDER
     Route: 048
  26. LAMICTAL [Concomitant]
     Active Substance: LAMOTRIGINE
  27. SEROQUEL [Suspect]
     Active Substance: QUETIAPINE FUMARATE
     Indication: MOOD ALTERED
     Route: 048
  28. SEROQUEL [Suspect]
     Active Substance: QUETIAPINE FUMARATE
     Indication: PARANOIA
     Dosage: 150 MG AT NIGHT, OTHER TIMES SHE HAS TO TAKEN AN EXTRA 50 MG
     Route: 048
     Dates: start: 201502
  29. CELEBREX [Concomitant]
     Active Substance: CELECOXIB
     Indication: MUSCLE SPASMS
     Route: 048
     Dates: start: 2010

REACTIONS (25)
  - Nausea [Unknown]
  - Pain [Not Recovered/Not Resolved]
  - Blood cholesterol increased [Not Recovered/Not Resolved]
  - Somnambulism [Unknown]
  - Insomnia [Recovered/Resolved]
  - Somnambulism [Recovered/Resolved]
  - Fatigue [Not Recovered/Not Resolved]
  - Blood triglycerides increased [Not Recovered/Not Resolved]
  - Weight increased [Not Recovered/Not Resolved]
  - Activities of daily living impaired [Unknown]
  - Amnesia [Recovered/Resolved]
  - Sleep disorder [Not Recovered/Not Resolved]
  - Hepatic failure [Unknown]
  - Hostility [Unknown]
  - Feeling abnormal [Unknown]
  - Apathy [Unknown]
  - Back pain [Not Recovered/Not Resolved]
  - Loss of consciousness [Recovered/Resolved]
  - Disturbance in attention [Unknown]
  - Weight decreased [Recovered/Resolved]
  - Social fear [Unknown]
  - Hangover [Recovered/Resolved]
  - Vomiting [Unknown]
  - Intentional product misuse [Unknown]
  - Drug dose omission [Unknown]

NARRATIVE: CASE EVENT DATE: 2014
